FAERS Safety Report 8607702-1 (Version None)
Quarter: 2012Q3

REPORT INFORMATION
  Report Type: 
  Country: None (occurrence: None)
  Receive Date: 20120821
  Receipt Date: 20120815
  Transmission Date: 20120928
  Serious: Yes (Other)
  Sender: FDA-Public Use
  Company Number: US-PFIZER INC-2012200900

PATIENT
  Age: 83 Year
  Sex: Female
  Weight: 54.422 kg

DRUGS (6)
  1. PREMARIN [Suspect]
     Dosage: 0.625 MG, 1X/DAY
     Route: 067
  2. PREMARIN [Suspect]
     Dosage: 1 G, 1X/DAY
     Route: 067
  3. PREMARIN [Suspect]
     Dosage: UNK
     Route: 067
  4. DIGOXIN [Concomitant]
     Indication: CARDIAC DISORDER
     Dosage: 0.125 MG, 1X/DAY
  5. CALCIUM [Concomitant]
     Indication: MINERAL SUPPLEMENTATION
     Dosage: UNK, 3X/DAY((ONE WITH EVERY MEAL)
  6. BENICAR [Concomitant]
     Dosage: 20 MG, 1X/DAY

REACTIONS (3)
  - PRODUCT QUALITY ISSUE [None]
  - INCORRECT DOSE ADMINISTERED [None]
  - CARDIAC DISORDER [None]
